FAERS Safety Report 25402785 (Version 1)
Quarter: 2025Q2

REPORT INFORMATION
  Report Type: Spontaneous
  Country: US (occurrence: US)
  Receive Date: 20250605
  Receipt Date: 20250605
  Transmission Date: 20250717
  Serious: No
  Sender: MYLAN
  Company Number: US-MYLANLABS-2025M1046131

PATIENT
  Sex: Female
  Weight: 58.97 kg

DRUGS (1)
  1. ATOVAQUONE\PROGUANIL HYDROCHLORIDE [Suspect]
     Active Substance: ATOVAQUONE\PROGUANIL HYDROCHLORIDE
     Indication: Malaria
     Dosage: 250 PER 100 MILLIGRAM, QD (ONCE A DAY)
     Dates: start: 202402

REACTIONS (2)
  - Joint swelling [Unknown]
  - Urticaria [Unknown]
